FAERS Safety Report 21359040 (Version 1)
Quarter: 2022Q3

REPORT INFORMATION
  Report Type: Spontaneous
  Country: JP (occurrence: JP)
  Receive Date: 20220921
  Receipt Date: 20220921
  Transmission Date: 20221027
  Serious: Yes (Other)
  Sender: FDA-Public Use
  Company Number: JP-ASTELLAS-2022JP013712

PATIENT
  Age: 88 Year
  Sex: Female

DRUGS (7)
  1. ZOLPIDEM TARTRATE [Suspect]
     Active Substance: ZOLPIDEM TARTRATE
     Indication: Insomnia
     Dosage: 5 MG
     Route: 048
  2. ZOLPIDEM TARTRATE [Suspect]
     Active Substance: ZOLPIDEM TARTRATE
     Dosage: 10 MG
     Route: 048
  3. ZOLPIDEM TARTRATE [Suspect]
     Active Substance: ZOLPIDEM TARTRATE
     Dosage: 5 MG
     Route: 048
  4. ICOSAPENT ETHYL [Concomitant]
     Active Substance: ICOSAPENT ETHYL
     Indication: Product used for unknown indication
     Dosage: UNK UNK, UNKNOWN FREQ.
     Route: 048
  5. ALINAMIN-A25 [Concomitant]
     Indication: Product used for unknown indication
     Dosage: UNK UNK, UNKNOWN FREQ.
     Route: 048
  6. REBAMIPIDE [Concomitant]
     Active Substance: REBAMIPIDE
     Indication: Product used for unknown indication
     Dosage: UNK UNK, UNKNOWN FREQ.
     Route: 048
  7. ROZEREM [Concomitant]
     Active Substance: RAMELTEON
     Indication: Product used for unknown indication
     Dosage: UNK UNK, UNKNOWN FREQ.
     Route: 048

REACTIONS (8)
  - Depressed level of consciousness [Unknown]
  - Fracture [Unknown]
  - Middle insomnia [Unknown]
  - Feeling abnormal [Unknown]
  - Feeling abnormal [Unknown]
  - Oropharyngeal discomfort [Unknown]
  - Fall [Unknown]
  - Off label use [Unknown]

NARRATIVE: CASE EVENT DATE: 20211101
